FAERS Safety Report 17270987 (Version 1)
Quarter: 2020Q1

REPORT INFORMATION
  Report Type: Spontaneous
  Country: US (occurrence: US)
  Receive Date: 20200115
  Receipt Date: 20200115
  Transmission Date: 20200409
  Serious: Yes (Hospitalization)
  Sender: FDA-Public Use
  Company Number: US-CIPLA LTD.-2020US00139

PATIENT

DRUGS (3)
  1. NADOLOL. [Suspect]
     Active Substance: NADOLOL
     Indication: ATRIAL FIBRILLATION
     Dosage: UNK, ACCIDENTALLY TAKEN 2 DOSES INSTEAD OF ONE
     Route: 065
  2. CARDIZEM [Concomitant]
     Active Substance: DILTIAZEM HYDROCHLORIDE
     Indication: ATRIAL FIBRILLATION
     Dosage: UNK
     Route: 065
  3. LOPRESSOR [Concomitant]
     Active Substance: METOPROLOL TARTRATE
     Indication: ATRIAL FIBRILLATION
     Dosage: UNK
     Route: 065

REACTIONS (2)
  - Concomitant disease aggravated [Recovered/Resolved]
  - Extra dose administered [Unknown]
